FAERS Safety Report 17297855 (Version 1)
Quarter: 2020Q1

REPORT INFORMATION
  Report Type: Spontaneous
  Country: FR (occurrence: FR)
  Receive Date: 20200122
  Receipt Date: 20200122
  Transmission Date: 20200409
  Serious: Yes (Other)
  Sender: FDA-Public Use
  Company Number: FR-TEVA-2020-FR-1171124

PATIENT
  Age: 53 Year
  Sex: Female
  Weight: 76.5 kg

DRUGS (11)
  1. PHENERGAN [Suspect]
     Active Substance: PROMETHAZINE HYDROCHLORIDE
     Dosage: 50 MG PER DAY
     Route: 048
     Dates: start: 20191101, end: 20191128
  2. OESTRODOSE [Concomitant]
     Active Substance: ESTRADIOL
     Dosage: 1 DOSAGE FORMS PER DAY
     Route: 003
  3. NORSET [Suspect]
     Active Substance: MIRTAZAPINE
     Indication: AFFECTIVE DISORDER
     Dosage: 7.5 MG PER DAY
     Route: 048
     Dates: end: 20191123
  4. VENLAFAXINE [Suspect]
     Active Substance: VENLAFAXINE HYDROCHLORIDE
     Indication: AFFECTIVE DISORDER
     Dosage: 150 MG PER DAY
     Route: 048
     Dates: start: 20191029, end: 20191128
  5. BROMAZEPAM [Suspect]
     Active Substance: BROMAZEPAM
     Indication: DEPRESSION
     Dosage: 9 MG PER DAY
     Route: 048
     Dates: end: 20191128
  6. LUBENTYL [MAGNESIUM HYDROXIDE/PARAFFIN] [Suspect]
     Active Substance: MAGNESIUM HYDROXIDE\MINERAL OIL
     Dosage: 3 DOSAGE FORMS PER DAY
     Route: 048
     Dates: start: 20191114, end: 20191128
  7. SERESTA [Concomitant]
     Active Substance: OXAZEPAM
     Indication: DEPRESSION
     Dosage: 105 MG PER DAY
     Route: 048
     Dates: start: 20191128, end: 20191201
  8. FORLAX 10 G, POUDRE POUR SOLUTION BUVABLE EN SACHET-DOSE [Suspect]
     Active Substance: POLYETHYLENE GLYCOL 4000
     Dosage: 6 DOSAGE FORMS PER DAY
     Route: 048
     Dates: start: 20191107, end: 20191128
  9. ESTIMA 100 MG, CAPSULE MOLLE ORALE OU VAGINALE [Concomitant]
     Dosage: 1 DOSAGE FORMS PER DAY
     Route: 048
  10. SULFARLEM [Suspect]
     Active Substance: ANETHOLTRITHION
     Dosage: 100 MG PER DAY
     Route: 048
     Dates: start: 20191101, end: 20191128
  11. NOCTAMIDE 2 MG, COMPRIME SECABLE [Suspect]
     Active Substance: LORMETAZEPAM
     Dosage: 1 DOSAGE FORMS PER DAY
     Route: 048
     Dates: end: 20191128

REACTIONS (1)
  - Hepatocellular injury [Recovering/Resolving]

NARRATIVE: CASE EVENT DATE: 20191127
